FAERS Safety Report 5409499-5 (Version None)
Quarter: 2007Q3

REPORT INFORMATION
  Report Type: 
  Country: None (occurrence: None)
  Receive Date: 20070809
  Receipt Date: 20070731
  Transmission Date: 20080115
  Serious: Yes (Hospitalization)
  Sender: FDA-Public Use
  Company Number: US-AMGEN-STX235402

PATIENT
  Sex: Male

DRUGS (9)
  1. ENBREL [Suspect]
     Indication: PSORIATIC ARTHROPATHY
     Route: 058
     Dates: start: 20030401
  2. SYNTHROID [Concomitant]
  3. ALPRAZOLAM [Concomitant]
  4. ZOLOFT [Concomitant]
  5. NORVASC [Concomitant]
  6. METFORMIN HCL [Concomitant]
  7. DOXEPIN HCL [Concomitant]
  8. INSULIN [Concomitant]
  9. BEXTRA [Concomitant]

REACTIONS (4)
  - ARTHRALGIA [None]
  - DIABETIC RETINOPATHY [None]
  - JOINT SWELLING [None]
  - SUBARACHNOID HAEMORRHAGE [None]
